FAERS Safety Report 8859428 (Version 3)
Quarter: 2013Q2

REPORT INFORMATION
  Report Type: Report from Study
  Country: JP (occurrence: JP)
  Receive Date: 20121024
  Receipt Date: 20130417
  Transmission Date: 20140414
  Serious: Yes (Hospitalization, Other)
  Sender: FDA-Public Use
  Company Number: JP-VERTEX PHARMACEUTICAL INC.-AE-2012-009357

PATIENT
  Age: 61 Year
  Sex: Male

DRUGS (13)
  1. VX-950 (TELAPREVIR) [Suspect]
     Indication: CHRONIC HEPATITIS C
     Dosage: 2250 MG, QD
     Route: 048
     Dates: start: 20120613, end: 20120619
  2. REBETOL [Suspect]
     Indication: CHRONIC HEPATITIS C
     Dosage: 800 MG, QD
     Route: 048
     Dates: start: 20120613, end: 20120911
  3. REBETOL [Suspect]
     Dosage: 600 MG, QD
     Route: 048
     Dates: start: 20120912, end: 20120925
  4. REBETOL [Suspect]
     Dosage: 400 MG, QD
     Route: 048
     Dates: start: 20120926
  5. PEGINTRON                          /01543001/ [Concomitant]
     Dosage: 1.33 ?G/KG, QW
     Route: 058
     Dates: start: 20120613
  6. RENIVACE [Concomitant]
     Dosage: 10 MG, QD
     Route: 048
  7. ACTOS [Concomitant]
     Dosage: 15 MG, QD
     Route: 048
  8. AMARYL [Concomitant]
     Dosage: 2 MG, QD
     Route: 048
  9. ALLELOCK [Concomitant]
     Dosage: 10 MG, QD
     Route: 048
     Dates: start: 20120613, end: 20120619
  10. ALLELOCK [Concomitant]
     Dosage: 10 MG, QD
     Route: 048
     Dates: start: 20120626
  11. LOXONIN [Concomitant]
     Dosage: 60 MG, QD
     Route: 048
     Dates: start: 20120613, end: 20120619
  12. LOXONIN [Concomitant]
     Dosage: 60 MG, QD
     Route: 048
     Dates: start: 20120626
  13. ADALAT CR [Concomitant]
     Dosage: 20 MG, QD
     Route: 048

REACTIONS (2)
  - Somnolence [Recovered/Resolved]
  - Haemoglobin decreased [Recovered/Resolved]
